FAERS Safety Report 9969687 (Version 1)
Quarter: 2014Q1

REPORT INFORMATION
  Report Type: Spontaneous
  Country: US (occurrence: None)
  Receive Date: 20140304
  Receipt Date: 20140304
  Transmission Date: 20141002
  Serious: Yes (Hospitalization)
  Sender: FDA-Public Use
  Company Number: SYM-2014-17841

PATIENT
  Age: 59 Year
  Sex: Male

DRUGS (20)
  1. WELLBUTRIN SR [Suspect]
     Indication: BIPOLAR DISORDER
     Route: 048
  2. IMITREX (SUMATRIPTAN SUCCINATE) (TABLET) (SUMATRIPTAN SUCCINATE) [Suspect]
     Indication: MIGRAINE
     Route: 048
  3. SERTRALINE (SERTRALINE) (SERTRALINE) [Suspect]
     Indication: PRODUCT USED FOR UNKNOWN INDICATION
  4. SEROQUEL [Suspect]
     Indication: PRODUCT USED FOR UNKNOWN INDICATION
  5. LOVAZA [Suspect]
     Indication: CARDIAC DISORDER
     Route: 048
  6. PERCOCET (OXYCOCET) (PARACETAMOL, OXYCODONE HYDROCHLORIDE) [Concomitant]
  7. XANAX (ALPRAZOLAM) (ALPRAZOLAM) [Concomitant]
  8. LIPITOR (ATORVASTATIN CALCIUM) (ATORAVASTATIN CALCIUM) [Concomitant]
  9. PLAVIX (CLOPIDOGREL BUSULATE) (CLOPIDOGREL BISULFATE) [Concomitant]
  10. LOPRESSOR (METOPROLOL TARTRATE) (METOPROLOL TARTRATE) [Concomitant]
  11. K-DUR (POTASSIUM CHLORIDE) (POTASSIUM CHLORIDE) [Concomitant]
  12. LYRICA (PREGABALIN) (PREGABALIN) [Concomitant]
  13. SCOPOLAMINE (HYOSCINE) (HYOSCINE) [Concomitant]
  14. AMBIEN (ZOLPIDEM TARTRATE) (ZOLPIDEM TARTRATE) [Concomitant]
  15. XANADINE (RANITDINE HYDROCHLORIDE) (RANITIDINE HYDROCHLORIDE0 [Concomitant]
  16. MECLIZINE (MECLOZINE HYDROCHLORIDE) (MECLOZINE HYDROCHLORIDE) [Concomitant]
  17. DEXILANT (DEXLANSOPRAZOLE) (DEXLANSOPRAZOLE) [Concomitant]
  18. LOSARTAN (LOSARTAN) (LOSARTAN) [Concomitant]
  19. CONTIN (MORPHINE SULFATE) (MORPHINE SULFATE) [Concomitant]
  20. OXYCODONE (OXYCODONE) (OXYCODONE) [Concomitant]

REACTIONS (7)
  - Myocardial infarction [None]
  - Arterial occlusive disease [None]
  - Heart rate irregular [None]
  - Device malfunction [None]
  - Nasopharyngitis [None]
  - Pneumonia staphylococcal [None]
  - Immunodeficiency [None]
